FAERS Safety Report 7191649-4 (Version None)
Quarter: 2010Q4

REPORT INFORMATION
  Report Type: 
  Country: None (occurrence: None)
  Receive Date: 20101223
  Receipt Date: 20101130
  Transmission Date: 20110411
  Serious: Yes (Hospitalization)
  Sender: FDA-Public Use
  Company Number: US-BAYER-2010-006888

PATIENT
  Sex: Female
  Weight: 61.224 kg

DRUGS (3)
  1. YASMIN [Suspect]
     Dosage: UNK
     Dates: start: 20020301, end: 20100501
  2. ZITHROMAX [Concomitant]
  3. NSAID'S [Concomitant]

REACTIONS (4)
  - BILIARY COLIC [None]
  - BILIARY DYSKINESIA [None]
  - CHOLECYSTECTOMY [None]
  - SINUSITIS [None]
